FAERS Safety Report 8341515-3 (Version None)
Quarter: 2012Q2

REPORT INFORMATION
  Report Type: 
  Country: None (occurrence: None)
  Receive Date: 20120507
  Receipt Date: 20100607
  Transmission Date: 20120825
  Serious: Yes (Death, Hospitalization)
  Sender: FDA-Public Use
  Company Number: US-TEVA-2010000788

PATIENT
  Sex: Male

DRUGS (2)
  1. TREANDA [Suspect]
     Indication: NON-HODGKIN'S LYMPHOMA
     Route: 042
     Dates: start: 20100128, end: 20100129
  2. ALLOPURINOL [Suspect]
     Indication: ABDOMINAL NEOPLASM

REACTIONS (1)
  - TUMOUR LYSIS SYNDROME [None]
